FAERS Safety Report 9084099 (Version 1)
Quarter: 2013Q1

REPORT INFORMATION
  Report Type: Spontaneous
  Country: KR (occurrence: KR)
  Receive Date: 20130218
  Receipt Date: 20130218
  Transmission Date: 20140127
  Serious: No
  Sender: FDA-Public Use
  Company Number: PHHY2012KR121321

PATIENT
  Sex: Female

DRUGS (2)
  1. TASIGNA [Suspect]
     Indication: CHRONIC MYELOID LEUKAEMIA
     Dosage: 200 MG, QD
     Route: 048
     Dates: start: 20121123, end: 201212
  2. GLIVEC [Suspect]
     Dosage: 300 MG, QD
     Route: 048
     Dates: start: 20040302, end: 201211

REACTIONS (4)
  - Dyspepsia [Unknown]
  - Diarrhoea [Recovered/Resolved]
  - Pain [Unknown]
  - Vomiting [Recovered/Resolved]
